FAERS Safety Report 8876952 (Version 1)
Quarter: 2012Q4

REPORT INFORMATION
  Report Type: 
  Country: US (occurrence: US)
  Receive Date: 20121023
  Receipt Date: 20121023
  Transmission Date: 20130627
  Serious: No
  Sender: FDA-Public Use
  Company Number: US-AMGEN-USASP2012058116

PATIENT
  Age: 51 Year
  Sex: Female
  Weight: 89.8 kg

DRUGS (11)
  1. ENBREL [Suspect]
     Indication: PSORIASIS
     Dosage: 50 mg, qwk
     Route: 058
  2. ENBREL [Suspect]
     Indication: RHEUMATOID ARTHRITIS
  3. CYMBALTA [Concomitant]
     Dosage: 30 mg, UNK
  4. LOPID [Concomitant]
     Dosage: 600 mg, UNK
  5. CLOBETASOL [Concomitant]
     Dosage: 0.05%
  6. PREDNISONE [Concomitant]
     Dosage: 10 mg, UNK
  7. MAGNESIUM                          /00082501/ [Concomitant]
     Dosage: 500 mg, UNK
  8. FISH OIL [Concomitant]
     Dosage: UNK
  9. IRON [Concomitant]
     Dosage: 325 mg, UNK
  10. FOLIC ACID [Concomitant]
     Dosage: UNK
  11. METHOTREXATE [Concomitant]
     Dosage: 25 mg/ml, UNK

REACTIONS (1)
  - Pruritus [Unknown]
